FAERS Safety Report 7450137-8 (Version None)
Quarter: 2011Q2

REPORT INFORMATION
  Report Type: 
  Country: None (occurrence: None)
  Receive Date: 20110421
  Receipt Date: 20110411
  Transmission Date: 20111010
  Serious: Yes (Hospitalization)
  Sender: FDA-Public Use
  Company Number: 1000020027

PATIENT
  Age: 18 Year
  Sex: Female

DRUGS (1)
  1. DILTIAZEM [Suspect]
     Dosage: 3600 MG (3600 MG,  1 IN 1 D0, ORAL
     Route: 047

REACTIONS (9)
  - OLIGURIA [None]
  - BLOOD GLUCOSE INCREASED [None]
  - SUICIDE ATTEMPT [None]
  - HYPOTENSION [None]
  - PERIPHERAL COLDNESS [None]
  - STAPHYLOCOCCAL SEPSIS [None]
  - RESPIRATORY FAILURE [None]
  - OVERDOSE [None]
  - NODAL RHYTHM [None]
